FAERS Safety Report 4319075-3 (Version None)
Quarter: 2004Q1

REPORT INFORMATION
  Report Type: 
  Country: None (occurrence: None)
  Receive Date: 20040318
  Receipt Date: 20040318
  Transmission Date: 20041129
  Serious: No
  Sender: FDA-Public Use
  Company Number: None

PATIENT
  Age: 36 Year
  Sex: Male

DRUGS (6)
  1. QUETIAPINE 25 MG ASTRAZENECA [Suspect]
     Indication: AGORAPHOBIA
     Dosage: 25 MG QHS ORAL
     Route: 048
     Dates: start: 20030822, end: 20030824
  2. QUETIAPINE 25 MG ASTRAZENECA [Suspect]
     Indication: PANIC DISORDER
     Dosage: 25 MG QHS ORAL
     Route: 048
     Dates: start: 20030822, end: 20030824
  3. QUETIAPINE 25 MG ASTRAZENECA [Suspect]
     Indication: POST-TRAUMATIC STRESS DISORDER
     Dosage: 25 MG QHS ORAL
     Route: 048
     Dates: start: 20030822, end: 20030824
  4. DIVALPROEN [Concomitant]
  5. HYDROCHLOROTHIAZIDE [Concomitant]
  6. LISINOPRIL [Concomitant]

REACTIONS (7)
  - DISORIENTATION [None]
  - DIZZINESS [None]
  - HEADACHE [None]
  - MICTURITION URGENCY [None]
  - NEUROLEPTIC MALIGNANT SYNDROME [None]
  - NIGHT SWEATS [None]
  - URINE OUTPUT DECREASED [None]
